FAERS Safety Report 17597730 (Version 4)
Quarter: 2020Q3

REPORT INFORMATION
  Report Type: Report from Study
  Country: CN (occurrence: CN)
  Receive Date: 20200330
  Receipt Date: 20200921
  Transmission Date: 20201102
  Serious: Yes (Death, Hospitalization, Disabling, Other)
  Sender: FDA-Public Use
  Company Number: CN-BRISTOL-MYERS SQUIBB COMPANY-BMS-2020-025352

PATIENT
  Age: 63 Year
  Sex: Male

DRUGS (1)
  1. NIVOLUMAB [Suspect]
     Active Substance: NIVOLUMAB
     Indication: SQUAMOUS CELL CARCINOMA
     Dosage: 180 MILLIGRAM, Q2WK
     Route: 042
     Dates: start: 20180829

REACTIONS (3)
  - Malignant neoplasm progression [Fatal]
  - Cardiac disorder [Unknown]
  - Spinal disorder [Unknown]

NARRATIVE: CASE EVENT DATE: 20200608
